FAERS Safety Report 8378069-1 (Version None)
Quarter: 2012Q2

REPORT INFORMATION
  Report Type: 
  Country: None (occurrence: None)
  Receive Date: 20120521
  Receipt Date: 20120507
  Transmission Date: 20120825
  Serious: Yes (Other)
  Sender: FDA-Public Use
  Company Number: AUR-APL-2012-02221

PATIENT
  Age: 35 Year
  Sex: Male

DRUGS (4)
  1. STAVUDINE [Concomitant]
  2. NEVIRAPINE [Concomitant]
  3. TRIMETHOPRIM-SULFAMETHOXAZOLE [Suspect]
     Indication: PROPHYLAXIS
  4. LAMIVUDINE [Concomitant]

REACTIONS (3)
  - VISUAL IMPAIRMENT [None]
  - MYOPIA [None]
  - IDIOSYNCRATIC DRUG REACTION [None]
